FAERS Safety Report 4451427-3 (Version None)
Quarter: 2004Q3

REPORT INFORMATION
  Report Type: 
  Country: None (occurrence: None)
  Receive Date: 20040915
  Receipt Date: 20040902
  Transmission Date: 20050211
  Serious: Yes (Other)
  Sender: FDA-Public Use
  Company Number: 2004062380

PATIENT
  Sex: Male

DRUGS (1)
  1. NEURONTIN [Suspect]
     Indication: PETIT MAL EPILEPSY

REACTIONS (4)
  - ARTHRALGIA [None]
  - ARTHROPATHY [None]
  - CHONDROPATHY [None]
  - FALL [None]
